FAERS Safety Report 13238743 (Version 1)
Quarter: 2017Q1

REPORT INFORMATION
  Report Type: Spontaneous
  Country: US (occurrence: US)
  Receive Date: 20170216
  Receipt Date: 20170216
  Transmission Date: 20170428
  Serious: Yes (Other)
  Sender: FDA-Public Use
  Company Number: US-CLINIGEN GROUP PLC/ CLINIGEN HEALTHCARE LTD-E2B_00001587

PATIENT
  Age: 56 Year
  Sex: Female
  Weight: 59 kg

DRUGS (7)
  1. TPN [Concomitant]
     Active Substance: AMINO ACIDS\DEXTROSE\ELECTROLYTES NOS\SOYBEAN OIL
     Route: 042
  2. CIPROFLOXACIN. [Concomitant]
     Active Substance: CIPROFLOXACIN
     Dosage: 400MG 4 DAY(S)
     Route: 042
     Dates: start: 19971009, end: 19971012
  3. NEUPOGEN [Concomitant]
     Active Substance: FILGRASTIM
     Dosage: 480MCG 4 DAY(S)
     Route: 058
     Dates: start: 19971009, end: 19971012
  4. KYTRIL [Concomitant]
     Active Substance: GRANISETRON HYDROCHLORIDE
     Dosage: 1MG 1 DAY(S)
     Route: 042
     Dates: start: 19971011, end: 19971011
  5. DILAUDID [Concomitant]
     Active Substance: HYDROMORPHONE HYDROCHLORIDE
     Dosage: 2-4MG PRN 4 DAY(S)
     Route: 042
     Dates: start: 19971009, end: 19971012
  6. INSULIN [Concomitant]
     Active Substance: INSULIN NOS
     Route: 065
  7. ETHYOL [Suspect]
     Active Substance: AMIFOSTINE
     Indication: ADVERSE DRUG REACTION
     Dosage: 1170MG 1 DAY(S)
     Route: 042
     Dates: start: 19971011, end: 19971011

REACTIONS (1)
  - Generalised tonic-clonic seizure [Recovered/Resolved]

NARRATIVE: CASE EVENT DATE: 19971011
